FAERS Safety Report 4430667-3 (Version None)
Quarter: 2004Q3

REPORT INFORMATION
  Report Type: 
  Country: None (occurrence: None)
  Receive Date: 20040818
  Receipt Date: 20040812
  Transmission Date: 20050211
  Serious: Yes (Life-Threatening, Hospitalization)
  Sender: FDA-Public Use
  Company Number: 2004PK01354

PATIENT
  Age: 60 Year
  Sex: Female
  Weight: 58 kg

DRUGS (10)
  1. NEXIUM [Suspect]
     Dosage: 20 MG QD PO
     Route: 048
  2. PLAVIX [Suspect]
     Indication: MYOCARDIAL ISCHAEMIA
     Dosage: 75 MG QD PO
     Route: 048
     Dates: start: 20040518
  3. CORDARONE [Suspect]
     Indication: ATRIAL FIBRILLATION
     Dosage: 200 MG QD PO
     Route: 048
     Dates: start: 20040520
  4. ASPIRIN [Concomitant]
  5. PRAVASTATIN SODIUM [Concomitant]
  6. LIQUEMIN     /GFR/ [Concomitant]
  7. TOREM    /GFR/ [Concomitant]
  8. INHIBACE [Concomitant]
  9. ALDACTONE [Concomitant]
  10. INSULIN [Concomitant]

REACTIONS (8)
  - ATRIAL FIBRILLATION [None]
  - ATRIAL FLUTTER [None]
  - DRUG INEFFECTIVE [None]
  - DRUG INTERACTION INHIBITION [None]
  - MYOCARDIAL INFARCTION [None]
  - STENT OCCLUSION [None]
  - SURGICAL PROCEDURE REPEATED [None]
  - THROMBOSIS [None]
